FAERS Safety Report 5409836-1 (Version None)
Quarter: 2007Q3

REPORT INFORMATION
  Report Type: 
  Country: None (occurrence: None)
  Receive Date: 20070809
  Receipt Date: 20070801
  Transmission Date: 20080115
  Serious: Yes (Hospitalization)
  Sender: FDA-Public Use
  Company Number: US-GENENTECH-245510

PATIENT
  Sex: Female
  Weight: 63.946 kg

DRUGS (1)
  1. AVASTIN [Suspect]
     Indication: NON-SMALL CELL LUNG CANCER
     Dosage: 5 MG/KG, Q3W
     Route: 042
     Dates: start: 20061101, end: 20070509

REACTIONS (1)
  - MENINGITIS [None]
